FAERS Safety Report 8777496 (Version 1)
Quarter: 2012Q4

REPORT INFORMATION
  Report Type: 
  Country: DK (occurrence: FR)
  Receive Date: 20120911
  Receipt Date: 20120911
  Transmission Date: 20130627
  Serious: Yes (Hospitalization)
  Sender: FDA-Public Use
  Company Number: FR-FRI-1000038452

PATIENT
  Sex: Female

DRUGS (7)
  1. ESCITALOPRAM [Suspect]
     Dosage: 1 DF on request
     Dates: start: 201205, end: 201205
  2. KETUM [Suspect]
     Indication: ECZEMA
     Dosage: 1 DF on request
     Route: 003
     Dates: start: 20120501, end: 20120531
  3. TOPLEXIL [Suspect]
     Dosage: 1 DF on request
     Dates: start: 201207, end: 201207
  4. PYOSTACINE [Concomitant]
     Dosage: 3000 mg
  5. SOLUPRED [Concomitant]
  6. DIPROSONE [Concomitant]
  7. ORBENINE [Concomitant]

REACTIONS (2)
  - Eczema [Recovered/Resolved]
  - Photosensitivity reaction [Recovered/Resolved]
